FAERS Safety Report 11604993 (Version 2)
Quarter: 2015Q4

REPORT INFORMATION
  Report Type: Spontaneous
  Country: US (occurrence: US)
  Receive Date: 20151007
  Receipt Date: 20151222
  Transmission Date: 20160304
  Serious: Yes (Hospitalization)
  Sender: FDA-Public Use
  Company Number: US-PFIZER INC-2015330901

PATIENT
  Age: 67 Year
  Sex: Female
  Weight: 79 kg

DRUGS (6)
  1. LYRICA [Suspect]
     Active Substance: PREGABALIN
     Indication: MUSCLE SPASMS
     Dosage: 225 MG, 1X/DAY (ONCE AT BED TIME)
     Route: 048
     Dates: start: 2007
  2. SKELAXIN [Suspect]
     Active Substance: METAXALONE
     Indication: MUSCLE SPASMS
     Dosage: 800 MG, 3X/DAY
     Route: 048
     Dates: start: 2007
  3. PREMARIN [Suspect]
     Active Substance: ESTROGENS, CONJUGATED
     Dosage: 0.5MG 4 TIMES A WEEK
     Dates: start: 2013
  4. PREMARIN [Suspect]
     Active Substance: ESTROGENS, CONJUGATED
     Indication: PROPHYLAXIS URINARY TRACT INFECTION
     Dosage: 30 MG TUBE TWICE A WEEK
     Dates: start: 2007
  5. LYRICA [Suspect]
     Active Substance: PREGABALIN
     Indication: FIBROMYALGIA
  6. PERCOCET [Concomitant]
     Active Substance: ACETAMINOPHEN\OXYCODONE HYDROCHLORIDE
     Dosage: 10 MG, 60
     Dates: start: 2007

REACTIONS (2)
  - Urinary tract infection [Recovered/Resolved]
  - Memory impairment [Not Recovered/Not Resolved]

NARRATIVE: CASE EVENT DATE: 201507
